FAERS Safety Report 7636291-3 (Version None)
Quarter: 2011Q3

REPORT INFORMATION
  Report Type: 
  Country: None (occurrence: None)
  Receive Date: 20110726
  Receipt Date: 20110701
  Transmission Date: 20111222
  Serious: Yes (Hospitalization)
  Sender: FDA-Public Use
  Company Number: US-GLAXOSMITHKLINE-A0780406A

PATIENT
  Age: 70 Year
  Sex: Male
  Weight: 133 kg

DRUGS (10)
  1. SYNTHROID [Concomitant]
  2. AVANDIA [Suspect]
     Indication: DIABETES MELLITUS
     Dosage: 4MG TWICE PER DAY
     Route: 048
     Dates: start: 20020101, end: 20070809
  3. GLUCOPHAGE [Concomitant]
  4. CALAN [Concomitant]
  5. PRINIVIL [Concomitant]
  6. EFFEXOR [Concomitant]
  7. HYDRODIURIL [Concomitant]
  8. ZANTAC [Concomitant]
  9. SIMVASTATIN [Concomitant]
  10. GLYBURIDE [Concomitant]

REACTIONS (12)
  - MYOCARDIAL INFARCTION [None]
  - ARTERIOSCLEROSIS [None]
  - HYPERTENSION [None]
  - OEDEMA PERIPHERAL [None]
  - AORTIC VALVE CALCIFICATION [None]
  - CARDIOMEGALY [None]
  - ANXIETY [None]
  - TRICUSPID VALVE INCOMPETENCE [None]
  - MITRAL VALVE INCOMPETENCE [None]
  - CORONARY ARTERY DISEASE [None]
  - HYPOGLYCAEMIA [None]
  - WEIGHT INCREASED [None]
